FAERS Safety Report 8407095-9 (Version None)
Quarter: 2012Q2

REPORT INFORMATION
  Report Type: 
  Country: None (occurrence: None)
  Receive Date: 20120529
  Receipt Date: 20020619
  Transmission Date: 20120825
  Serious: Yes (Life-Threatening, Hospitalization)
  Sender: FDA-Public Use
  Company Number: 02100-JPN-02-0049

PATIENT
  Age: 64 Year
  Sex: Male
  Weight: 80 kg

DRUGS (8)
  1. FAMOTIDINE [Concomitant]
  2. RENOVACE (ENALAPRIL MALEATE) [Concomitant]
  3. MELVALOTIN (PROVASTATIN SODIUM) [Concomitant]
  4. PLETAL [Suspect]
     Indication: ANTIPLATELET THERAPY
     Dosage: 50 MG, BID, ORAL
     Route: 048
     Dates: start: 20010502, end: 20020509
  5. PLETAL [Suspect]
     Indication: STENT PLACEMENT
     Dosage: 50 MG, BID, ORAL
     Route: 048
     Dates: start: 20010502, end: 20020509
  6. TICLOPIDINE HCL [Concomitant]
  7. BUFFERIN [Concomitant]
  8. HEPARIN [Concomitant]

REACTIONS (10)
  - RENAL FAILURE ACUTE [None]
  - ANAEMIA [None]
  - GASTROINTESTINAL HAEMORRHAGE [None]
  - RESPIRATORY ARREST [None]
  - HYPOXIA [None]
  - COMA [None]
  - INTERSTITIAL LUNG DISEASE [None]
  - DISSEMINATED INTRAVASCULAR COAGULATION [None]
  - HYPERGLYCAEMIA [None]
  - RESPIRATORY FAILURE [None]
